FAERS Safety Report 25014012 (Version 6)
Quarter: 2025Q4

REPORT INFORMATION
  Report Type: Spontaneous
  Country: US (occurrence: US)
  Receive Date: 20250226
  Receipt Date: 20251110
  Transmission Date: 20260117
  Serious: Yes (Other)
  Sender: PFIZER
  Company Number: US-PFIZER INC-202500043105

PATIENT
  Age: 72 Year
  Sex: Female

DRUGS (2)
  1. IBRANCE [Suspect]
     Active Substance: PALBOCICLIB
     Indication: Breast cancer female
     Dosage: 100 MG, DAILY
     Route: 048
     Dates: end: 202412
  2. IBRANCE [Suspect]
     Active Substance: PALBOCICLIB
     Dosage: 100 MG, CYCLIC (1 TAB EACH DAY AT THE SAME TIME FOR 21 DAYS AND 7 DAYS OFF)
     Route: 048

REACTIONS (3)
  - Thrombosis [Unknown]
  - Pneumonia [Unknown]
  - Dementia [Unknown]

NARRATIVE: CASE EVENT DATE: 20230101
